FAERS Safety Report 13814292 (Version 5)
Quarter: 2018Q4

REPORT INFORMATION
  Report Type: Spontaneous
  Country: US (occurrence: US)
  Receive Date: 20170731
  Receipt Date: 20181212
  Transmission Date: 20190204
  Serious: Yes (Other)
  Sender: FDA-Public Use
  Company Number: US-PFIZER INC-2017327586

PATIENT
  Age: 63 Year
  Sex: Female
  Weight: 69.39 kg

DRUGS (13)
  1. CARISOPRODOL. [Concomitant]
     Active Substance: CARISOPRODOL
     Dosage: UNK
  2. LISINOPRIL. [Concomitant]
     Active Substance: LISINOPRIL
     Dosage: UNK
  3. OMEGA 3 [Concomitant]
     Active Substance: OMEGA-3 FATTY ACIDS
     Dosage: UNK
  4. LYRICA [Suspect]
     Active Substance: PREGABALIN
     Indication: SEIZURE
     Dosage: 50 MG, 3X/DAY
     Route: 048
  5. OMEGA XL [Concomitant]
     Active Substance: DIETARY SUPPLEMENT
     Dosage: UNK
  6. HYDROCODONE [Concomitant]
     Active Substance: HYDROCODONE
     Indication: NECK PAIN
     Dosage: UNK UNK, 3X/DAY (1/2 TAB 3 TIMES A DAY 10-325 MG)
  7. FLUOXETINE [Concomitant]
     Active Substance: FLUOXETINE HYDROCHLORIDE
     Dosage: UNK
  8. LYRICA [Suspect]
     Active Substance: PREGABALIN
     Dosage: 50 MG, 1X/DAY
     Route: 048
  9. NORCO [Concomitant]
     Active Substance: ACETAMINOPHEN\HYDROCODONE BITARTRATE
     Indication: PAIN
     Dosage: UNK
  10. ASPIRIN. [Concomitant]
     Active Substance: ASPIRIN
     Dosage: UNK
  11. HYDROCODONE [Concomitant]
     Active Substance: HYDROCODONE
     Indication: BACK PAIN
  12. CITRACAL [Concomitant]
     Active Substance: CALCIUM CITRATE
     Dosage: UNK
  13. LYRICA [Suspect]
     Active Substance: PREGABALIN
     Indication: ARTERIOVENOUS MALFORMATION
     Dosage: 50 MG, 2X/DAY
     Route: 048

REACTIONS (3)
  - Brain neoplasm [Unknown]
  - Intentional product misuse [Unknown]
  - Headache [Not Recovered/Not Resolved]
